FAERS Safety Report 6413787-3 (Version None)
Quarter: 2009Q4

REPORT INFORMATION
  Report Type: 
  Country: None (occurrence: None)
  Receive Date: 20091026
  Receipt Date: 20091019
  Transmission Date: 20100525
  Serious: Yes (Other)
  Sender: FDA-Public Use
  Company Number: CA-BAYER-200915688BCC

PATIENT
  Age: 58 Year
  Sex: Female

DRUGS (13)
  1. ALEVE [Suspect]
     Indication: DRUG USE FOR UNKNOWN INDICATION
     Route: 048
  2. ASPIRIN [Suspect]
     Indication: DRUG USE FOR UNKNOWN INDICATION
     Dosage: TOTAL DAILY DOSE: 81 MG  UNIT DOSE: 81 MG
     Route: 048
  3. PLAVIX [Suspect]
     Indication: DRUG USE FOR UNKNOWN INDICATION
     Dosage: TOTAL DAILY DOSE: 75 MG  UNIT DOSE: 75 MG
     Route: 048
  4. ARANESP [Concomitant]
     Route: 065
  5. CALCIUM CARBONATE [Concomitant]
     Route: 065
  6. CLONAZEPAM [Concomitant]
     Route: 065
  7. FUROSEMIDE [Concomitant]
     Route: 065
  8. LYRICA [Concomitant]
     Route: 065
  9. NORVASC [Concomitant]
     Route: 065
  10. PYRIDOXINE [Concomitant]
     Route: 065
  11. RENAGEL [Concomitant]
     Route: 065
  12. ALBUTEROL [Concomitant]
     Route: 065
  13. VENOFER [Concomitant]
     Route: 065

REACTIONS (5)
  - ATELECTASIS [None]
  - BRONCHITIS [None]
  - HAEMATEMESIS [None]
  - HAEMOPTYSIS [None]
  - LUNG NEOPLASM [None]
